FAERS Safety Report 6056392-3 (Version None)
Quarter: 2009Q1

REPORT INFORMATION
  Report Type: 
  Country: None (occurrence: None)
  Receive Date: 20090129
  Receipt Date: 20090126
  Transmission Date: 20090719
  Serious: Yes (Hospitalization)
  Sender: FDA-Public Use
  Company Number: JP-BAYER-200812682BYL

PATIENT
  Age: 61 Year
  Sex: Female

DRUGS (7)
  1. CIPROFLOXACIN [Suspect]
     Indication: PYREXIA
     Route: 065
     Dates: start: 20080201
  2. PREDONINE [Concomitant]
     Indication: PYREXIA
     Route: 065
     Dates: start: 20080201
  3. PREDONINE [Concomitant]
     Route: 065
  4. CEFTRIAXONE SODIUM [Concomitant]
     Indication: INFECTION
     Route: 065
  5. MEROPENEM TRIHYDRATE [Concomitant]
     Route: 065
  6. POLYGAM S/D [Concomitant]
     Route: 065
  7. FUROSEMIDE [Concomitant]
     Indication: PLEURAL EFFUSION
     Route: 065

REACTIONS (7)
  - ACUTE GENERALISED EXANTHEMATOUS PUSTULOSIS [None]
  - DRUG RASH WITH EOSINOPHILIA AND SYSTEMIC SYMPTOMS [None]
  - ERYTHEMA [None]
  - HEPATIC FUNCTION ABNORMAL [None]
  - HUMAN HERPESVIRUS 6 INFECTION [None]
  - RASH PUSTULAR [None]
  - WHITE BLOOD CELL COUNT INCREASED [None]
